FAERS Safety Report 7693376-3 (Version None)
Quarter: 2011Q3

REPORT INFORMATION
  Report Type: 
  Country: None (occurrence: None)
  Receive Date: 20110819
  Receipt Date: 20110811
  Transmission Date: 20111222
  Serious: Yes (Death, Life-Threatening)
  Sender: FDA-Public Use
  Company Number: MY-GENZYME-CLOF-1001238

PATIENT
  Sex: Male
  Weight: 69 kg

DRUGS (6)
  1. CYCLOPHOSPHAMIDE [Suspect]
     Indication: ACUTE LYMPHOCYTIC LEUKAEMIA
     Dosage: 400 MG/M2, QDX5
     Route: 065
     Dates: start: 20100727, end: 20100731
  2. ETOPOSIDE [Suspect]
     Indication: ACUTE LYMPHOCYTIC LEUKAEMIA
     Dosage: 100 MG/2, QDX5
     Route: 065
     Dates: start: 20100727, end: 20100731
  3. CLOLAR [Suspect]
     Indication: ACUTE LYMPHOCYTIC LEUKAEMIA
     Dosage: 20 MG/M2, QDX5
     Route: 042
     Dates: start: 20100727, end: 20100731
  4. CLOLAR [Suspect]
     Dosage: 36.8 MG, QDX5
     Route: 042
     Dates: start: 20100920, end: 20100924
  5. CYCLOPHOSPHAMIDE [Suspect]
     Dosage: UNK UNK, QDX5
     Route: 065
     Dates: start: 20100920, end: 20100924
  6. ETOPOSIDE [Suspect]
     Dosage: UNK UNK, QDX5
     Route: 065
     Dates: start: 20100920, end: 20100924

REACTIONS (2)
  - SEPSIS [None]
  - INFECTION [None]
